FAERS Safety Report 20528415 (Version 3)
Quarter: 2022Q1

REPORT INFORMATION
  Report Type: Spontaneous
  Country: RO (occurrence: RO)
  Receive Date: 20220228
  Receipt Date: 20220311
  Transmission Date: 20220424
  Serious: Yes (Death, Life-Threatening, Hospitalization, Disabling, Other)
  Sender: FDA-Public Use
  Company Number: RO-MEDO2008-L202201034

PATIENT
  Age: 46 Year
  Sex: Male

DRUGS (21)
  1. IMATINIB [Suspect]
     Active Substance: IMATINIB
     Indication: Non-Hodgkin^s lymphoma stage IV
     Dosage: UNK
  2. IMATINIB [Suspect]
     Active Substance: IMATINIB
     Indication: Hypereosinophilic syndrome
  3. OXALIPLATIN [Suspect]
     Active Substance: OXALIPLATIN
     Indication: Non-Hodgkin^s lymphoma
     Dosage: UNK
  4. OXALIPLATIN [Suspect]
     Active Substance: OXALIPLATIN
     Indication: Non-Hodgkin^s lymphoma stage IV
  5. OXALIPLATIN [Suspect]
     Active Substance: OXALIPLATIN
     Indication: Hypereosinophilic syndrome
  6. GEMCITABINE [Suspect]
     Active Substance: GEMCITABINE
     Indication: Non-Hodgkin^s lymphoma
     Dosage: UNK
  7. GEMCITABINE [Suspect]
     Active Substance: GEMCITABINE
     Indication: Hypereosinophilic syndrome
  8. GEMCITABINE [Suspect]
     Active Substance: GEMCITABINE
     Indication: Non-Hodgkin^s lymphoma stage IV
  9. CISPLATIN [Suspect]
     Active Substance: CISPLATIN
     Indication: Non-Hodgkin^s lymphoma stage IV
     Dosage: UNK
  10. CISPLATIN [Suspect]
     Active Substance: CISPLATIN
     Indication: Hypereosinophilic syndrome
  11. DEXAMETHASONE [Suspect]
     Active Substance: DEXAMETHASONE
     Indication: Non-Hodgkin^s lymphoma
     Dosage: UNK
  12. DEXAMETHASONE [Suspect]
     Active Substance: DEXAMETHASONE
     Indication: Non-Hodgkin^s lymphoma stage IV
  13. DEXAMETHASONE [Suspect]
     Active Substance: DEXAMETHASONE
     Indication: Hypereosinophilic syndrome
  14. PREDNISONE [Suspect]
     Active Substance: PREDNISONE
     Indication: Non-Hodgkin^s lymphoma
     Dosage: UNK
  15. ETOPOSIDE [Suspect]
     Active Substance: ETOPOSIDE
     Indication: Non-Hodgkin^s lymphoma
     Dosage: UNK
  16. CYTARABINE [Suspect]
     Active Substance: CYTARABINE
     Indication: Non-Hodgkin^s lymphoma stage IV
     Dosage: UNK
  17. CYTARABINE [Suspect]
     Active Substance: CYTARABINE
     Indication: Hypereosinophilic syndrome
  18. CYCLOPHOSPHAMIDE [Suspect]
     Active Substance: CYCLOPHOSPHAMIDE
     Indication: Non-Hodgkin^s lymphoma
     Dosage: UNK
  19. VINCRISTINE [Suspect]
     Active Substance: VINCRISTINE
     Indication: Non-Hodgkin^s lymphoma
     Dosage: UNK
  20. DOXORUBICIN [Suspect]
     Active Substance: DOXORUBICIN
     Indication: Non-Hodgkin^s lymphoma
     Dosage: UNK
  21. BRENTUXIMAB [Suspect]
     Active Substance: BRENTUXIMAB
     Indication: Non-Hodgkin^s lymphoma
     Dosage: UNK

REACTIONS (18)
  - Adrenal insufficiency [Fatal]
  - Drug ineffective [Fatal]
  - Coma [Unknown]
  - Haemodynamic instability [Unknown]
  - Hypoglycaemia [Fatal]
  - Asthenia [Fatal]
  - Oedema [Fatal]
  - Hypotension [Fatal]
  - Tachypnoea [Unknown]
  - Multiple organ dysfunction syndrome [Fatal]
  - Disease progression [Fatal]
  - Lymphadenopathy [Fatal]
  - Diarrhoea [Fatal]
  - Pleurisy [Fatal]
  - Leukocytosis [Fatal]
  - Hepatosplenomegaly [Fatal]
  - Cardiac failure [Fatal]
  - Eosinophilia [Fatal]
